FAERS Safety Report 8475844 (Version 6)
Quarter: 2013Q2

REPORT INFORMATION
  Report Type: Report from Study
  Country: US (occurrence: US)
  Receive Date: 20120326
  Receipt Date: 20130514
  Transmission Date: 20140414
  Serious: Yes (Other)
  Sender: FDA-Public Use
  Company Number: PHEH2012US006357

PATIENT
  Sex: Female

DRUGS (1)
  1. GILENYA [Suspect]
     Indication: MULTIPLE SCLEROSIS
     Dosage: 0.5 MG, QD
     Route: 048

REACTIONS (23)
  - Contusion [Unknown]
  - Haemorrhage [Unknown]
  - Fall [Not Recovered/Not Resolved]
  - Progressive multiple sclerosis [Unknown]
  - Gait disturbance [Not Recovered/Not Resolved]
  - Balance disorder [Not Recovered/Not Resolved]
  - Cognitive disorder [Unknown]
  - Optic neuritis [Unknown]
  - Blindness unilateral [Unknown]
  - Ageusia [Unknown]
  - Bladder dysfunction [Unknown]
  - Functional gastrointestinal disorder [Unknown]
  - Asthenia [Unknown]
  - Fatigue [Unknown]
  - General physical health deterioration [Unknown]
  - Speech disorder [Unknown]
  - Rib fracture [Unknown]
  - Upper limb fracture [Unknown]
  - Lower limb fracture [Unknown]
  - Foot fracture [Unknown]
  - Spinal fracture [Unknown]
  - Concussion [Unknown]
  - Scar [Unknown]
